FAERS Safety Report 8839495 (Version 1)
Quarter: 2012Q4

REPORT INFORMATION
  Report Type: Report from Study
  Country: JP (occurrence: JP)
  Receive Date: 20121015
  Receipt Date: 20121015
  Transmission Date: 20130627
  Serious: Yes (Hospitalization, Other)
  Sender: FDA-Public Use
  Company Number: JP-VERTEX PHARMACEUTICAL INC.-AE-2012-008163

PATIENT
  Age: 52 Year
  Sex: Male

DRUGS (5)
  1. VX-950 [Suspect]
     Indication: HEPATITIS C
     Dosage: 2250 mg, qd
     Route: 048
     Dates: start: 20120324, end: 20120325
  2. REBETOL [Concomitant]
     Dosage: 800 mg, qd
     Route: 048
     Dates: start: 20120324, end: 20120328
  3. PEGINTERFERON ALFA-2B [Concomitant]
     Dosage: 1.5 UNK, UNK
     Route: 058
     Dates: start: 20120324, end: 20120328
  4. URSO                               /00465701/ [Concomitant]
     Dosage: 600 mg, qd
     Route: 048
     Dates: start: 20100807
  5. OMEPRAL /00661201/ [Concomitant]
     Dosage: 20 mg, qd
     Route: 048
     Dates: start: 20120324, end: 20120330

REACTIONS (2)
  - Toxic skin eruption [Recovered/Resolved]
  - Toxic skin eruption [Recovered/Resolved]
